FAERS Safety Report 6424423-4 (Version None)
Quarter: 2009Q4

REPORT INFORMATION
  Report Type: 
  Country: None (occurrence: None)
  Receive Date: 20091029
  Receipt Date: 20091014
  Transmission Date: 20100525
  Serious: Yes (Hospitalization, Other)
  Sender: FDA-Public Use
  Company Number: AUR-APL-2009-00929

PATIENT
  Age: 39 Year
  Sex: Male

DRUGS (9)
  1. LISINOPRIL [Suspect]
     Indication: HYPERTENSION
     Dosage: OVERDOSE, ONCE, ORAL
     Route: 048
     Dates: start: 20090217
  2. METFORMIN HCL [Suspect]
     Indication: DIABETES MELLITUS
     Dosage: OVERDOSE, ONCE, ORAL
     Route: 048
     Dates: start: 20090217
  3. SIMAVASTATIN [Suspect]
     Indication: BLOOD CHOLESTEROL INCREASED
     Dosage: OVERDOSE - ONCE
     Dates: start: 20090217
  4. CLOMIPRAMINE HCL [Suspect]
     Indication: DEPRESSION
     Dosage: OVERDOSE - ONCE
     Dates: start: 20090217
  5. CLOZARIL [Suspect]
     Indication: SCHIZOPHRENIA
     Dosage: OVERDOSE - ONCE
     Dates: start: 20090217
  6. HYOSCINE [Suspect]
     Dosage: OVERDOSE - ONCE
     Dates: start: 20090217
  7. OMEPRAZOLE [Suspect]
     Dosage: OVERDOSE - ONCE
     Dates: start: 20090217
  8. SENNA [Suspect]
     Indication: CONSTIPATION
     Dosage: OVERDOSE - ONCE
     Dates: start: 20090217
  9. THIAMIDE [Concomitant]

REACTIONS (3)
  - AGITATION [None]
  - MULTIPLE DRUG OVERDOSE [None]
  - NEUTROPHIL COUNT INCREASED [None]
